FAERS Safety Report 22284323 (Version 2)
Quarter: 2023Q2

REPORT INFORMATION
  Report Type: Report from Study
  Country: US (occurrence: US)
  Receive Date: 20230504
  Receipt Date: 20230623
  Transmission Date: 20230722
  Serious: No
  Sender: FDA-Public Use
  Company Number: US-002147023-NVSC2023US099285

PATIENT
  Age: 66 Year
  Sex: Female

DRUGS (2)
  1. MEKINIST [Suspect]
     Active Substance: TRAMETINIB DIMETHYL SULFOXIDE
     Indication: Malignant melanoma
     Dosage: 2 MG, QD
     Route: 048
     Dates: start: 20130310
  2. MEKINIST [Suspect]
     Active Substance: TRAMETINIB DIMETHYL SULFOXIDE
     Indication: Ovarian cancer
     Dosage: 2 MG (MILLIGRAM), QD (ONCE DAILY)
     Route: 048
     Dates: start: 20230330

REACTIONS (7)
  - Pain in extremity [Unknown]
  - Burning sensation [Unknown]
  - Peripheral swelling [Unknown]
  - Joint swelling [Unknown]
  - Limb injury [Recovering/Resolving]
  - Skin fissures [Unknown]
  - Dry skin [Unknown]

NARRATIVE: CASE EVENT DATE: 20230407
